FAERS Safety Report 4552027-7 (Version None)
Quarter: 2005Q1

REPORT INFORMATION
  Report Type: 
  Country: None (occurrence: None)
  Receive Date: 20050112
  Receipt Date: 20050105
  Transmission Date: 20050727
  Serious: Yes (Hospitalization)
  Sender: FDA-Public Use
  Company Number: GXBR2004US00460

PATIENT
  Age: 75 Year
  Sex: Female
  Weight: 77.1 kg

DRUGS (4)
  1. LORATADINE [Suspect]
     Indication: NASOPHARYNGITIS
     Dosage: 10 MG, QD, ORAL
     Route: 048
     Dates: start: 20041201, end: 20041201
  2. ZOCOR [Concomitant]
  3. VYTORIN (EZETIMIBE, SIMVASTATIN) [Concomitant]
  4. MOTRIN [Concomitant]

REACTIONS (4)
  - BLOOD PRESSURE INCREASED [None]
  - BREAST PAIN [None]
  - MYOCARDIAL INFARCTION [None]
  - OROPHARYNGEAL SWELLING [None]
